FAERS Safety Report 10549793 (Version 4)
Quarter: 2015Q3

REPORT INFORMATION
  Report Type: Spontaneous
  Country: US (occurrence: US)
  Receive Date: 20141028
  Receipt Date: 20150911
  Transmission Date: 20151125
  Serious: Yes (Hospitalization, Other)
  Sender: FDA-Public Use
  Company Number: US-UCBSA-2014015757

PATIENT
  Age: 58 Year
  Sex: Female

DRUGS (1)
  1. CIMZIA [Suspect]
     Active Substance: CERTOLIZUMAB PEGOL
     Indication: CROHN^S DISEASE
     Dosage: 1 KIT A MONTH
     Dates: start: 201406, end: 2015

REACTIONS (8)
  - Crohn^s disease [Unknown]
  - Drug ineffective [Unknown]
  - Inflammation [Not Recovered/Not Resolved]
  - Pancreatitis [Not Recovered/Not Resolved]
  - Bedridden [Not Recovered/Not Resolved]
  - Unevaluable event [Unknown]
  - Nephrolithiasis [Not Recovered/Not Resolved]
  - Malaise [Not Recovered/Not Resolved]

NARRATIVE: CASE EVENT DATE: 201409
